FAERS Safety Report 24139974 (Version 3)
Quarter: 2024Q3

REPORT INFORMATION
  Report Type: Spontaneous
  Country: US (occurrence: US)
  Receive Date: 20240726
  Receipt Date: 20240924
  Transmission Date: 20241016
  Serious: No
  Sender: BRISTOL MYERS SQUIBB
  Company Number: US-BRISTOL-MYERS SQUIBB COMPANY-2024-118628

PATIENT
  Age: 57 Year
  Sex: Female

DRUGS (3)
  1. POMALYST [Suspect]
     Active Substance: POMALIDOMIDE
     Indication: Plasma cell myeloma
     Dosage: FOR 21 DAYS.
     Route: 048
     Dates: start: 202406
  2. POMALYST [Suspect]
     Active Substance: POMALIDOMIDE
     Dosage: FOR 21 DAYS.
     Route: 048
     Dates: start: 202406
  3. POMALYST [Suspect]
     Active Substance: POMALIDOMIDE
     Dosage: FOR 21 DAYS.
     Route: 048
     Dates: start: 202406

REACTIONS (6)
  - Contusion [Unknown]
  - Musculoskeletal discomfort [Unknown]
  - Peripheral swelling [Unknown]
  - Arthralgia [Unknown]
  - Swelling [Unknown]
  - Tendon disorder [Unknown]
